FAERS Safety Report 11918230 (Version 4)
Quarter: 2016Q4

REPORT INFORMATION
  Report Type: Report from Study
  Country: AU (occurrence: AU)
  Receive Date: 20160114
  Receipt Date: 20161110
  Transmission Date: 20170206
  Serious: Yes (Hospitalization)
  Sender: FDA-Public Use
  Company Number: AU-ROCHE-1666507

PATIENT
  Age: 84 Year
  Sex: Male
  Weight: 77.8 kg

DRUGS (23)
  1. PANADOL [Concomitant]
     Active Substance: ACETAMINOPHEN
     Indication: ABDOMINAL PAIN
     Route: 048
     Dates: start: 201507
  2. DEXAMETHASONE. [Concomitant]
     Active Substance: DEXAMETHASONE
     Indication: PREMEDICATION
     Dosage: DAY 1 PRE-CHEMOTHERAPY
     Route: 041
     Dates: start: 20150813, end: 20151014
  3. IRINOTECAN [Suspect]
     Active Substance: IRINOTECAN
     Dosage: DAY 1 OF EACH 14 DAY CYCLE
     Route: 042
     Dates: start: 20150903, end: 20151014
  4. MICARDIS [Concomitant]
     Active Substance: TELMISARTAN
     Indication: HYPERTENSION
     Route: 048
     Dates: start: 201211
  5. PALONOSETRON [Concomitant]
     Active Substance: PALONOSETRON
     Indication: PREMEDICATION
     Dosage: DAY 1 OF EACH CHEMO CYCLE
     Route: 040
     Dates: start: 20150813, end: 20151014
  6. PALONOSETRON [Concomitant]
     Active Substance: PALONOSETRON
     Indication: CHEMOTHERAPY
  7. 5-FLUOROURACIL [Suspect]
     Active Substance: FLUOROURACIL
     Indication: COLORECTAL CANCER
     Dosage: OVER 15 MIN: 400MG/M2, DAY 1 OF EACH 14 DAY CYCLE
     Route: 040
     Dates: start: 20150813
  8. NORVASC [Concomitant]
     Active Substance: AMLODIPINE BESYLATE
     Indication: HYPERTENSION
     Route: 048
     Dates: end: 20150909
  9. PRAMIN (AUSTRALIA) [Concomitant]
     Indication: NAUSEA
     Route: 048
     Dates: start: 20150815, end: 201510
  10. ATROPINE. [Concomitant]
     Active Substance: ATROPINE
     Indication: PREMEDICATION
     Dosage: EACH DAY 1 PRE-CHEMO
     Route: 058
     Dates: start: 20150813, end: 20151014
  11. LEUCOVORIN. [Concomitant]
     Active Substance: LEUCOVORIN
     Indication: COLORECTAL CANCER
     Dosage: DAY 1 OF EACH 14 DAY CYCLE
     Route: 042
     Dates: start: 20150813
  12. CRESTOR [Concomitant]
     Active Substance: ROSUVASTATIN CALCIUM
     Indication: HYPERCHOLESTEROLAEMIA
     Route: 048
     Dates: start: 2010, end: 20151028
  13. BLINDED VELIPARIB [Suspect]
     Active Substance: VELIPARIB
     Indication: COLORECTAL CANCER
     Dosage: 2 THROUGH 5 OF 14 DAY CYCLE
     Route: 048
     Dates: start: 20150811, end: 20151027
  14. SEREPAX [Concomitant]
     Active Substance: OXAZEPAM
     Route: 048
     Dates: start: 201501
  15. BEVACIZUMAB [Suspect]
     Active Substance: BEVACIZUMAB
     Indication: COLORECTAL CANCER
     Dosage: DAY1 OF 14 DAY CYCLE
     Route: 042
     Dates: start: 20150813, end: 20151014
  16. IRINOTECAN [Suspect]
     Active Substance: IRINOTECAN
     Indication: COLORECTAL CANCER
     Dosage: DAY 1 OF EACH 14 DAY CYCLE
     Route: 042
     Dates: start: 20150813, end: 20151014
  17. NORVASC [Concomitant]
     Active Substance: AMLODIPINE BESYLATE
     Route: 048
     Dates: start: 20150910, end: 20150913
  18. MICROLAX (AUSTRALIA) [Concomitant]
     Route: 054
     Dates: start: 20150815, end: 20150815
  19. GASTROSTOP [Concomitant]
     Indication: DIARRHOEA
     Route: 048
     Dates: start: 20150817, end: 20151028
  20. 5-FLUOROURACIL [Suspect]
     Active Substance: FLUOROURACIL
     Dosage: OVER 46 HOURS: 2400 MG/M2
     Route: 042
     Dates: start: 20150813, end: 20150815
  21. 5-FLUOROURACIL [Suspect]
     Active Substance: FLUOROURACIL
     Dosage: 46 HOURS: 1920/MG/M2
     Route: 042
     Dates: start: 20150903, end: 20151016
  22. DEXAMETHASONE. [Concomitant]
     Active Substance: DEXAMETHASONE
     Indication: CHEMOTHERAPY
  23. SOMAC [Concomitant]
     Active Substance: PANTOPRAZOLE SODIUM
     Indication: GASTROOESOPHAGEAL REFLUX DISEASE
     Route: 048
     Dates: start: 2013, end: 20151028

REACTIONS (1)
  - Left ventricular dysfunction [Not Recovered/Not Resolved]

NARRATIVE: CASE EVENT DATE: 20150821
